FAERS Safety Report 7710067-0 (Version None)
Quarter: 2011Q3

REPORT INFORMATION
  Report Type: 
  Country: None (occurrence: None)
  Receive Date: 20110825
  Receipt Date: 20110817
  Transmission Date: 20111222
  Serious: Yes (Other)
  Sender: FDA-Public Use
  Company Number: PHHY2011MX74379

PATIENT
  Sex: Male

DRUGS (1)
  1. EXJADE [Suspect]
     Indication: IRON OVERLOAD
     Dosage: 1 DF (250 MG), DAILY
     Dates: start: 20100101, end: 20100401

REACTIONS (3)
  - POISONING [None]
  - EAR DISCOMFORT [None]
  - FLUID RETENTION [None]
